FAERS Safety Report 13650489 (Version 2)
Quarter: 2017Q3

REPORT INFORMATION
  Report Type: Spontaneous
  Country: JP (occurrence: JP)
  Receive Date: 20170614
  Receipt Date: 20170713
  Transmission Date: 20171127
  Serious: Yes (Other)
  Sender: FDA-Public Use
  Company Number: JP-ELI_LILLY_AND_COMPANY-JP201706003891

PATIENT
  Age: 81 Year
  Sex: Male
  Weight: 63 kg

DRUGS (29)
  1. TRAMCET [Suspect]
     Active Substance: ACETAMINOPHEN\TRAMADOL
     Indication: CANCER PAIN
     Dosage: UNK UNK, QID
     Route: 048
     Dates: start: 20160810
  2. AMLODIPINE [Concomitant]
     Active Substance: AMLODIPINE BESYLATE
  3. GOODMIN [Concomitant]
     Active Substance: BROTIZOLAM
  4. THERADIA [Concomitant]
  5. BROTIZOLAM [Concomitant]
     Active Substance: BROTIZOLAM
     Indication: CANCER PAIN
     Dosage: 0.25 MG, DAILY
     Route: 048
     Dates: start: 20170104
  6. ALFAROL [Concomitant]
     Active Substance: ALFACALCIDOL
  7. ALINAMIN F                         /00257801/ [Concomitant]
  8. MAGMITT [Concomitant]
     Active Substance: MAGNESIUM OXIDE
  9. ODYNE [Concomitant]
     Active Substance: FLUTAMIDE
     Indication: CANCER PAIN
     Dosage: 125 MG, TID
     Route: 048
     Dates: start: 20160810
  10. ACTOS [Concomitant]
     Active Substance: PIOGLITAZONE HYDROCHLORIDE
  11. VOALLA [Concomitant]
     Route: 062
  12. ZOLADEX [Concomitant]
     Active Substance: GOSERELIN ACETATE
  13. SENNOSIDE                          /00571901/ [Concomitant]
     Active Substance: SENNOSIDES A AND B
  14. INTEBAN [Concomitant]
     Active Substance: INDOMETHACIN
     Route: 062
  15. DULOXETINE HYDROCHLORIDE. [Suspect]
     Active Substance: DULOXETINE HYDROCHLORIDE
     Indication: ARTHRALGIA
     Dosage: 20 MG, EACH EVENING
     Route: 048
     Dates: start: 20170605, end: 20170606
  16. LOXOPROFEN SODIUM HYDRATE [Concomitant]
     Active Substance: LOXOPROFEN SODIUM DIHYDRATE
     Indication: CANCER PAIN
     Dosage: 60 MG, QID
     Route: 048
     Dates: start: 20160810
  17. EUGLUCON [Concomitant]
     Active Substance: GLYBURIDE
  18. ETHYL ICOSAPENTATE [Concomitant]
     Active Substance: ICOSAPENT ETHYL
  19. TALION                             /01587402/ [Concomitant]
     Active Substance: BEPOTASTINE
  20. HIRUDOID [Concomitant]
     Active Substance: GLYCOSAMINOGLYCANS
     Route: 062
  21. LULICON [Concomitant]
     Active Substance: LULICONAZOLE
     Route: 062
  22. TAKEPRON [Concomitant]
     Active Substance: LANSOPRAZOLE
     Indication: CANCER PAIN
     Dosage: 30 MG, DAILY
     Route: 048
     Dates: start: 20160810
  23. LYRICA [Concomitant]
     Active Substance: PREGABALIN
     Indication: CANCER PAIN
     Dosage: 75 MG, BID
     Route: 048
     Dates: start: 20170405
  24. CINAL [Concomitant]
     Active Substance: ASCORBIC ACID\CALCIUM PANTOTHENATE
  25. RANMARK [Concomitant]
     Active Substance: DENOSUMAB
  26. DENOTAS [Concomitant]
     Active Substance: CALCIUM CARBONATE\CHOLECALCIFEROL\MAGNESIUM CARBONATE
     Indication: CANCER PAIN
     Dosage: UNK, BID
     Route: 048
     Dates: start: 20170301
  27. PREMINENT [Concomitant]
     Active Substance: HYDROCHLOROTHIAZIDE\LOSARTAN POTASSIUM
     Route: 048
  28. LIPITOR [Concomitant]
     Active Substance: ATORVASTATIN CALCIUM
  29. EKSALB [Concomitant]

REACTIONS (5)
  - Serotonin syndrome [Recovering/Resolving]
  - Nasopharyngitis [Unknown]
  - Myoclonus [Recovered/Resolved]
  - Off label use [Recovered/Resolved]
  - Tremor [Recovering/Resolving]

NARRATIVE: CASE EVENT DATE: 20170605
